FAERS Safety Report 8050896-X (Version None)
Quarter: 2012Q1

REPORT INFORMATION
  Report Type: 
  Country: None (occurrence: None)
  Receive Date: 20120117
  Receipt Date: 20120110
  Transmission Date: 20120608
  Serious: Yes (Other)
  Sender: FDA-Public Use
  Company Number: PHHY2010CA00663

PATIENT
  Sex: Male

DRUGS (3)
  1. VITAMIN K TAB [Concomitant]
  2. SLOW-K [Concomitant]
  3. ZOMETA [Suspect]
     Indication: PROSTATE CANCER METASTATIC
     Dosage: 4 MG, EVERY 4 WEEKS
     Route: 042
     Dates: start: 20091113

REACTIONS (12)
  - BLOOD TESTOSTERONE DECREASED [None]
  - ASTHENIA [None]
  - HYPOGLYCAEMIA [None]
  - PROSTATIC SPECIFIC ANTIGEN INCREASED [None]
  - WEIGHT DECREASED [None]
  - BLOOD PRESSURE INCREASED [None]
  - TENDERNESS [None]
  - CONDITION AGGRAVATED [None]
  - BLOOD CALCIUM INCREASED [None]
  - BLOOD POTASSIUM DECREASED [None]
  - BACK PAIN [None]
  - ARTHRALGIA [None]
